FAERS Safety Report 24315821 (Version 3)
Quarter: 2025Q3

REPORT INFORMATION
  Report Type: Spontaneous
  Country: EU (occurrence: EU)
  Receive Date: 20240913
  Receipt Date: 20250903
  Transmission Date: 20251021
  Serious: Yes (Other)
  Sender: JOHNSON AND JOHNSON
  Company Number: EU-JNJFOC-20240930657

PATIENT
  Age: 54 Year
  Sex: Female
  Weight: 115 kg

DRUGS (2)
  1. YONDELIS [Suspect]
     Active Substance: TRABECTEDIN
     Indication: Leiomyosarcoma metastatic
     Route: 042
     Dates: start: 20240522, end: 20240702
  2. DOXORUBICIN [Suspect]
     Active Substance: DOXORUBICIN
     Indication: Leiomyosarcoma metastatic
     Route: 042
     Dates: start: 20240522, end: 20240702

REACTIONS (2)
  - Primary biliary cholangitis [Not Recovered/Not Resolved]
  - Off label use [Unknown]
